FAERS Safety Report 8158626-8 (Version None)
Quarter: 2012Q1

REPORT INFORMATION
  Report Type: 
  Country: None (occurrence: None)
  Receive Date: 20120223
  Receipt Date: 20120216
  Transmission Date: 20120608
  Serious: Yes (Hospitalization)
  Sender: FDA-Public Use
  Company Number: US-AMGEN-USASP2012010406

PATIENT
  Sex: Female

DRUGS (5)
  1. COREG [Concomitant]
     Dosage: UNK
  2. ARANESP [Suspect]
     Dosage: 60 MUG, QMO
  3. ACCUPRIL [Concomitant]
     Dosage: UNK
  4. ARANESP [Suspect]
     Indication: ANAEMIA OF CHRONIC DISEASE
     Dosage: UNK
     Dates: start: 20110101
  5. ARANESP [Suspect]
     Dosage: 60 MUG, Q2WK

REACTIONS (4)
  - OEDEMA PERIPHERAL [None]
  - KIDNEY INFECTION [None]
  - BLOOD PRESSURE INCREASED [None]
  - PNEUMONIA [None]
